FAERS Safety Report 20423018 (Version 2)
Quarter: 2022Q2

REPORT INFORMATION
  Report Type: Spontaneous
  Country: SE (occurrence: SE)
  Receive Date: 20220203
  Receipt Date: 20220502
  Transmission Date: 20220721
  Serious: Yes (Death, Life-Threatening, Hospitalization, Other)
  Sender: FDA-Public Use
  Company Number: None

PATIENT
  Age: 70 Year
  Sex: Male

DRUGS (9)
  1. SULFASALAZINE [Suspect]
     Active Substance: SULFASALAZINE
     Indication: Psoriatic arthropathy
     Dosage: 2000 MG, DAILY
     Dates: start: 20211101, end: 20211124
  2. ONTRUZANT [Suspect]
     Active Substance: TRASTUZUMAB-DTTB
     Indication: Salivary gland neoplasm
     Dosage: 6 MG/KG, EVERY 3 WEEKS
     Route: 042
     Dates: start: 202101
  3. ONTRUZANT [Suspect]
     Active Substance: TRASTUZUMAB-DTTB
     Dosage: 6 MG/KG, EVERY 3 WEEKS
     Route: 042
     Dates: end: 20211118
  4. MULTAQ [Suspect]
     Active Substance: DRONEDARONE
     Indication: Atrial fibrillation
     Dosage: 800 MG, DAILY
     Dates: start: 20211111, end: 202112
  5. SODIUM PICOSULFATE [Concomitant]
     Active Substance: SODIUM PICOSULFATE
     Dosage: 10 DROP, AS NEEDED
     Dates: start: 20210303
  6. ELIQUIS [Concomitant]
     Active Substance: APIXABAN
     Dosage: UNK
  7. MOVICOL [Concomitant]
     Active Substance: POLYETHYLENE GLYCOL 3350\POTASSIUM CHLORIDE\SODIUM BICARBONATE\SODIUM CHLORIDE
     Dosage: 1 DF, AS NEEDED
     Dates: start: 20210211
  8. ACETAMINOPHEN [Concomitant]
     Active Substance: ACETAMINOPHEN
     Dosage: UNK
     Dates: start: 20210426
  9. METOPROLOL [Concomitant]
     Active Substance: METOPROLOL
     Dosage: 1 DF, AS NEEDED

REACTIONS (3)
  - Pneumonitis [Fatal]
  - Cerebrovascular accident [Fatal]
  - Off label use [Unknown]

NARRATIVE: CASE EVENT DATE: 20211101
